FAERS Safety Report 13900612 (Version 1)
Quarter: 2017Q3

REPORT INFORMATION
  Report Type: Spontaneous
  Country: DK (occurrence: DK)
  Receive Date: 20170824
  Receipt Date: 20170824
  Transmission Date: 20171127
  Serious: Yes (Other)
  Sender: FDA-Public Use
  Company Number: PHHY2017DK121972

PATIENT
  Age: 69 Year
  Sex: Female

DRUGS (1)
  1. DICILLIN [Suspect]
     Active Substance: DICLOXACILLIN SODIUM
     Indication: STAPHYLOCOCCAL INFECTION
     Dosage: 4 G, QD
     Route: 065
     Dates: start: 2012

REACTIONS (8)
  - Colitis [Unknown]
  - Bronchospasm [Unknown]
  - Eosinophilia [Unknown]
  - Angioedema [Unknown]
  - Diarrhoea [Unknown]
  - Thrombocytopenia [Unknown]
  - Liver disorder [Unknown]
  - Abdominal distension [Unknown]
